FAERS Safety Report 8238277-7 (Version None)
Quarter: 2012Q1

REPORT INFORMATION
  Report Type: 
  Country: None (occurrence: None)
  Receive Date: 20120327
  Receipt Date: 20120312
  Transmission Date: 20120608
  Serious: Yes (Hospitalization, Other)
  Sender: FDA-Public Use
  Company Number: US-ROCHE-766805

PATIENT
  Sex: Male
  Weight: 75.8 kg

DRUGS (5)
  1. ALCOHOL [Suspect]
     Indication: PRODUCT USED FOR UNKNOWN INDICATION
     Route: 065
  2. PEGASYS [Suspect]
     Indication: HEPATITIS C
     Route: 058
  3. RIBAVIRIN [Suspect]
     Indication: HEPATITIS C
     Route: 048
  4. ABILIFY [Concomitant]
     Route: 065
  5. CYMBALTA [Concomitant]
     Route: 065

REACTIONS (30)
  - SUICIDAL IDEATION [None]
  - VOMITING [None]
  - WEIGHT DECREASED [None]
  - INJECTION SITE ULCER [None]
  - BACK PAIN [None]
  - PAIN OF SKIN [None]
  - MYALGIA [None]
  - ILL-DEFINED DISORDER [None]
  - FRACTURED COCCYX [None]
  - CONFUSIONAL STATE [None]
  - AMNESIA [None]
  - RASH [None]
  - ABDOMINAL PAIN UPPER [None]
  - WEIGHT INCREASED [None]
  - APHONIA [None]
  - CONVULSION [None]
  - VIRAL INFECTION [None]
  - DIARRHOEA [None]
  - ABDOMINAL DISTENSION [None]
  - NAUSEA [None]
  - INJECTION SITE MASS [None]
  - SPUTUM DISCOLOURED [None]
  - HEADACHE [None]
  - URTICARIA [None]
  - WHITE BLOOD CELL COUNT DECREASED [None]
  - NASOPHARYNGITIS [None]
  - ABDOMINAL PAIN LOWER [None]
  - INJECTION SITE PAIN [None]
  - PAIN [None]
  - BACILLUS INFECTION [None]
